FAERS Safety Report 12802071 (Version 1)
Quarter: 2016Q3

REPORT INFORMATION
  Report Type: Spontaneous
  Country: US (occurrence: US)
  Receive Date: 20160930
  Receipt Date: 20160930
  Transmission Date: 20161109
  Serious: No
  Sender: FDA-Public Use
  Company Number: None

PATIENT
  Age: 31 Year
  Sex: Female
  Weight: 54 kg

DRUGS (2)
  1. EMERGENC MULTI VITAMIN [Concomitant]
  2. MUCINEX DM [Suspect]
     Active Substance: DEXTROMETHORPHAN HYDROBROMIDE\GUAIFENESIN
     Indication: INCREASED VISCOSITY OF BRONCHIAL SECRETION
     Dosage: ?          QUANTITY:2 TABLET(S);?
     Route: 048
     Dates: start: 20160929, end: 20160929

REACTIONS (6)
  - Dizziness [None]
  - Feeling abnormal [None]
  - Product label confusion [None]
  - Hyperhidrosis [None]
  - Impaired driving ability [None]
  - Peripheral coldness [None]

NARRATIVE: CASE EVENT DATE: 20160929
